FAERS Safety Report 16957607 (Version 20)
Quarter: 2023Q2

REPORT INFORMATION
  Report Type: Other
  Country: DE (occurrence: DE)
  Receive Date: 20191024
  Receipt Date: 20230623
  Transmission Date: 20230722
  Serious: Yes (Other)
  Sender: FDA-Public Use
  Company Number: DE-ROCHE-2385886

PATIENT
  Age: 40 Year
  Sex: Female

DRUGS (19)
  1. OCREVUS [Suspect]
     Active Substance: OCRELIZUMAB
     Indication: Primary progressive multiple sclerosis
     Dosage: 600 MG EVERY 272 DAYS
     Route: 042
     Dates: start: 20190806
  2. OCREVUS [Suspect]
     Active Substance: OCRELIZUMAB
     Indication: Relapsing-remitting multiple sclerosis
     Dosage: DATE OF TREATMENT: 07/SEP/2020
     Route: 042
     Dates: start: 20200305
  3. OCREVUS [Suspect]
     Active Substance: OCRELIZUMAB
     Route: 042
     Dates: start: 20200907
  4. PFIZER-BIONTECH COVID-19 VACCINE [Suspect]
     Active Substance: TOZINAMERAN
     Indication: Product used for unknown indication
     Dosage: SECOND VACCINATION
     Route: 065
     Dates: start: 20210525
  5. HEPATITIS B VIRUS VACCINE [Suspect]
     Active Substance: HEPATITIS B VIRUS VACCINE
     Indication: Product used for unknown indication
     Route: 065
  6. ACYCLOVIR [Suspect]
     Active Substance: ACYCLOVIR
     Indication: Product used for unknown indication
     Route: 065
  7. PYOLYSIN [Concomitant]
     Indication: Wound
  8. SELENASE [Concomitant]
  9. DIMETHYL SULFONE [Concomitant]
     Active Substance: DIMETHYL SULFONE
  10. ATOSIL [Concomitant]
  11. LEVOTHYROXINE SODIUM [Concomitant]
     Active Substance: LEVOTHYROXINE SODIUM
     Dosage: 75 MICROGRAMS
  12. THYROX [Concomitant]
  13. CORTISONE [Concomitant]
     Active Substance: CORTISONE
     Indication: Premedication
     Dates: start: 20200305, end: 20200305
  14. DULOXETINE [Concomitant]
     Active Substance: DULOXETINE
  15. TROSPIUM CHLORIDE [Concomitant]
     Active Substance: TROSPIUM CHLORIDE
  16. MIRABEGRON [Concomitant]
     Active Substance: MIRABEGRON
  17. .DELTA.8-TETRAHYDROCANNABINOL\HERBALS [Concomitant]
     Active Substance: .DELTA.8-TETRAHYDROCANNABINOL\HERBALS
  18. ESCITALOPRAM [Concomitant]
     Active Substance: ESCITALOPRAM OXALATE
  19. .DELTA.8-TETRAHYDROCANNABINOL\HERBALS [Concomitant]
     Active Substance: .DELTA.8-TETRAHYDROCANNABINOL\HERBALS

REACTIONS (23)
  - Multiple sclerosis [Not Recovered/Not Resolved]
  - Skin odour abnormal [Recovered/Resolved]
  - B-lymphocyte abnormalities [Unknown]
  - Fatigue [Not Recovered/Not Resolved]
  - Rhinorrhoea [Recovered/Resolved]
  - Hypoaesthesia [Not Recovered/Not Resolved]
  - Urinary incontinence [Not Recovered/Not Resolved]
  - Burning sensation [Not Recovered/Not Resolved]
  - Genital tract inflammation [Recovered/Resolved]
  - Hot flush [Recovered/Resolved]
  - B-lymphocyte count increased [Recovered/Resolved]
  - Dry skin [Recovered/Resolved]
  - Reaction to excipient [Not Recovered/Not Resolved]
  - Dermatitis allergic [Unknown]
  - Alopecia [Recovered/Resolved]
  - Hypersensitivity [Not Recovered/Not Resolved]
  - Vulvovaginitis [Not Recovered/Not Resolved]
  - Prurigo [Not Recovered/Not Resolved]
  - Genital herpes [Recovered/Resolved]
  - Sciatica [Not Recovered/Not Resolved]
  - Sinusitis [Not Recovered/Not Resolved]
  - Cough [Not Recovered/Not Resolved]
  - Pneumonia [Not Recovered/Not Resolved]

NARRATIVE: CASE EVENT DATE: 20190806
